FAERS Safety Report 7147922-9 (Version None)
Quarter: 2010Q4

REPORT INFORMATION
  Report Type: 
  Country: None (occurrence: None)
  Receive Date: 20101206
  Receipt Date: 20101206
  Transmission Date: 20110411
  Serious: Yes (Other)
  Sender: FDA-Public Use
  Company Number: None

PATIENT
  Sex: Male
  Weight: 72.5755 kg

DRUGS (2)
  1. OXYCONTIN [Suspect]
     Indication: MULTIPLE MYELOMA
     Dosage: 10MG 3XDAY PO
     Route: 048
     Dates: start: 20100907, end: 20101204
  2. OXYCONTIN [Suspect]
     Indication: PAIN
     Dosage: 10MG 3XDAY PO
     Route: 048
     Dates: start: 20100907, end: 20101204

REACTIONS (5)
  - ABDOMINAL DISCOMFORT [None]
  - CONSTIPATION [None]
  - DRUG EFFECT DECREASED [None]
  - FLATULENCE [None]
  - THERAPEUTIC RESPONSE UNEXPECTED WITH DRUG SUBSTITUTION [None]
